FAERS Safety Report 13598108 (Version 1)
Quarter: 2017Q2

REPORT INFORMATION
  Report Type: Spontaneous
  Country: US (occurrence: US)
  Receive Date: 20170531
  Receipt Date: 20170531
  Transmission Date: 20170830
  Serious: No
  Sender: FDA-Public Use
  Company Number: US-DRREDDYS-USA/USA/17/0087876

PATIENT
  Age: 18 Year
  Sex: Female
  Weight: 70.31 kg

DRUGS (1)
  1. SERNIVO [Suspect]
     Active Substance: BETAMETHASONE DIPROPIONATE
     Indication: PSORIASIS
     Route: 061
     Dates: end: 201701

REACTIONS (2)
  - Drug dose omission [Unknown]
  - Exposure during pregnancy [Unknown]
